FAERS Safety Report 8339742-4 (Version None)
Quarter: 2012Q2

REPORT INFORMATION
  Report Type: 
  Country: None (occurrence: None)
  Receive Date: 20120507
  Receipt Date: 20120503
  Transmission Date: 20120825
  Serious: Yes (Death)
  Sender: FDA-Public Use
  Company Number: AU-B.I. PHARMACEUTICALS,INC./RIDGEFIELD-2012-AU-00687AU

PATIENT
  Sex: Male
  Weight: 65.1 kg

DRUGS (7)
  1. PRADAXA [Suspect]
     Indication: ATRIAL FIBRILLATION
     Dosage: 220 MG
     Dates: end: 20120315
  2. PROTON PUMP INHIBITOR [Concomitant]
  3. ANANDRON [Concomitant]
     Dosage: 300 MG
  4. FENTANYL CITRATE [Concomitant]
     Dosage: 25MCG/HOUR + 50MCG/HOUR
     Route: 062
  5. LIPITOR [Concomitant]
     Dosage: 40 MG
     Route: 062
  6. CARVEDILOL [Concomitant]
     Dosage: 12.5 MG
  7. LOXALATE [Concomitant]
     Dosage: 10 MG
     Route: 062

REACTIONS (2)
  - PROSTATE CANCER METASTATIC [None]
  - DYSPHAGIA [None]
